FAERS Safety Report 20946889 (Version 1)
Quarter: 2022Q2

REPORT INFORMATION
  Report Type: Spontaneous
  Country: NO (occurrence: NO)
  Receive Date: 20220610
  Receipt Date: 20220610
  Transmission Date: 20220721
  Serious: Yes (Hospitalization, Other)
  Sender: FDA-Public Use
  Company Number: NO-MYOVANT SCIENCES GMBH-2022MYSCI0500666

PATIENT
  Age: 43 Year
  Sex: Female
  Weight: 62 kg

DRUGS (3)
  1. ESTRADIOL\NORETHINDRONE ACETATE\RELUGOLIX [Suspect]
     Active Substance: ESTRADIOL\NORETHINDRONE ACETATE\RELUGOLIX
     Indication: Myomectomy
     Dosage: 1 TAB, QD
     Route: 048
     Dates: start: 20220401, end: 20220427
  2. AERIUS (DESLORATADINE) [Concomitant]
     Active Substance: DESLORATADINE
     Indication: Seasonal allergy
     Dosage: 1 DOSAGE FORM, QD
     Route: 048
     Dates: start: 20220315
  3. EXFORGE [Concomitant]
     Active Substance: AMLODIPINE BESYLATE\VALSARTAN
     Indication: Hypertension
     Dosage: UNK, QD
     Route: 048
     Dates: start: 2020

REACTIONS (7)
  - Haemorrhage [Recovered/Resolved]
  - Uterine dilation and curettage [Unknown]
  - Endometrial disorder [Unknown]
  - Abdominal distension [Recovered/Resolved]
  - Uterine spasm [Recovered/Resolved]
  - Abdominal pain [Recovered/Resolved]
  - Dry eye [Recovered/Resolved]

NARRATIVE: CASE EVENT DATE: 20220401
